FAERS Safety Report 5565368-1 (Version None)
Quarter: 2007Q4

REPORT INFORMATION
  Report Type: 
  Country: None (occurrence: None)
  Receive Date: 20071218
  Receipt Date: 20040719
  Transmission Date: 20080405
  Serious: Yes (Death, Hospitalization)
  Sender: FDA-Public Use
  Company Number: FR-ROCHE-373386

PATIENT
  Age: 35 Year
  Sex: Male
  Weight: 80 kg

DRUGS (8)
  1. ROVALCYTE [Suspect]
     Route: 048
     Dates: start: 20040702, end: 20040706
  2. COMBIVIR [Interacting]
     Route: 048
     Dates: start: 20040618, end: 20040706
  3. CORTICOTHERAPY [Concomitant]
  4. BACTRIM [Concomitant]
  5. RIFATER [Concomitant]
     Indication: PROPHYLAXIS
  6. OFLOCET [Concomitant]
     Indication: PROPHYLAXIS
  7. TAZOCILLINE [Concomitant]
     Indication: PROPHYLAXIS
  8. KALETRA [Concomitant]
     Route: 048
     Dates: start: 20040618, end: 20040706

REACTIONS (7)
  - CARDIAC ARREST [None]
  - DRUG INTERACTION [None]
  - HERPES VIRUS INFECTION [None]
  - HYPOXIA [None]
  - NEUTROPENIA [None]
  - RESPIRATORY DISTRESS [None]
  - TACHYPNOEA [None]
